FAERS Safety Report 21557516 (Version 1)
Quarter: 2022Q4

REPORT INFORMATION
  Report Type: Spontaneous
  Country: US (occurrence: US)
  Receive Date: 20221105
  Receipt Date: 20221105
  Transmission Date: 20230113
  Serious: Yes (Other)
  Sender: FDA-Public Use
  Company Number: US-Shilpa Medicare Limited-SML-US-2022-01424

PATIENT
  Age: 6 Year
  Sex: Male

DRUGS (4)
  1. IMATINIB [Suspect]
     Active Substance: IMATINIB
     Indication: Fibrodysplasia ossificans progressiva
  2. IMATINIB [Suspect]
     Active Substance: IMATINIB
     Dates: start: 201811
  3. PALOVAROTENE [Suspect]
     Active Substance: PALOVAROTENE
     Indication: Fibrodysplasia ossificans progressiva
  4. PREDNISONE [Suspect]
     Active Substance: PREDNISONE
     Indication: Fibrodysplasia ossificans progressiva

REACTIONS (3)
  - Condition aggravated [Recovered/Resolved]
  - Condition aggravated [Not Recovered/Not Resolved]
  - Off label use [Not Recovered/Not Resolved]
